FAERS Safety Report 23147881 (Version 1)
Quarter: 2023Q4

REPORT INFORMATION
  Report Type: Spontaneous
  Country: US (occurrence: US)
  Receive Date: 20231106
  Receipt Date: 20231106
  Transmission Date: 20240110
  Serious: Yes (Hospitalization, Other)
  Sender: FDA-Public Use
  Company Number: US-GLAXOSMITHKLINE-US2023AMR150658

PATIENT

DRUGS (7)
  1. VALTREX [Suspect]
     Active Substance: VALACYCLOVIR HYDROCHLORIDE
     Indication: Product used for unknown indication
     Dosage: UNK
  2. XOLAIR [Suspect]
     Active Substance: OMALIZUMAB
     Indication: Product used for unknown indication
     Dosage: UNK
     Route: 042
  3. PHENOBARBITAL SODIUM [Concomitant]
     Active Substance: PHENOBARBITAL SODIUM
     Indication: Product used for unknown indication
     Dosage: UNK
  4. APIXABAN [Concomitant]
     Active Substance: APIXABAN
     Indication: Product used for unknown indication
     Dosage: UNK
  5. APOAEQUORIN [Concomitant]
     Indication: Product used for unknown indication
     Dosage: UNK
  6. WARFARIN [Concomitant]
     Active Substance: WARFARIN
     Indication: Product used for unknown indication
     Dosage: UNK
  7. ELIQUIS [Concomitant]
     Active Substance: APIXABAN
     Indication: Product used for unknown indication
     Dosage: UNK

REACTIONS (17)
  - Liver disorder [Unknown]
  - Vertigo [Unknown]
  - Cardiac disorder [Unknown]
  - Coagulopathy [Unknown]
  - Ear infection viral [Unknown]
  - Protein deficiency [Unknown]
  - Lip swelling [Unknown]
  - Anaphylactic reaction [Unknown]
  - Illness [Unknown]
  - Skin disorder [Unknown]
  - Urticaria [Unknown]
  - Rash macular [Unknown]
  - Hepatic lesion [Unknown]
  - Swelling [Unknown]
  - Erythema [Unknown]
  - Herpes zoster [Unknown]
  - Epilepsy [Unknown]

NARRATIVE: CASE EVENT DATE: 20230401
